FAERS Safety Report 5763797-4 (Version None)
Quarter: 2008Q2

REPORT INFORMATION
  Report Type: 
  Country: None (occurrence: None)
  Receive Date: 20080602
  Receipt Date: 20080318
  Transmission Date: 20081010
  Serious: Yes (Hospitalization)
  Sender: FDA-Public Use
  Company Number: 168590USA

PATIENT

DRUGS (1)
  1. BUMETANIDE [Suspect]
     Dosage: (2 MG), ORAL
     Route: 048
     Dates: start: 20080201

REACTIONS (1)
  - BLOOD POTASSIUM DECREASED [None]
